FAERS Safety Report 10797761 (Version 3)
Quarter: 2015Q1

REPORT INFORMATION
  Report Type: Spontaneous
  Country: US (occurrence: US)
  Receive Date: 20150216
  Receipt Date: 20150309
  Transmission Date: 20150721
  Serious: No
  Sender: FDA-Public Use
  Company Number: US-PFIZER INC-2015052562

PATIENT
  Age: 62 Year
  Sex: Female

DRUGS (1)
  1. ZOLOFT [Suspect]
     Active Substance: SERTRALINE HYDROCHLORIDE
     Indication: DEPRESSION
     Dosage: UNK

REACTIONS (4)
  - Condition aggravated [Unknown]
  - Pain in extremity [Unknown]
  - Drug ineffective [Unknown]
  - Depression [Unknown]
